FAERS Safety Report 26068372 (Version 1)
Quarter: 2025Q4

REPORT INFORMATION
  Report Type: Spontaneous
  Country: EU (occurrence: EU)
  Receive Date: 20251120
  Receipt Date: 20251120
  Transmission Date: 20260117
  Serious: Yes (Other)
  Sender: MUNDIPHARMA EDO
  Company Number: None

PATIENT
  Age: 62 Year
  Sex: Male
  Weight: 81 kg

DRUGS (3)
  1. REZAFUNGIN ACETATE [Suspect]
     Active Substance: REZAFUNGIN ACETATE
     Indication: Bronchopulmonary aspergillosis
     Dosage: 1 DOSAGE FORM, WEEKLY
     Dates: start: 20250725
  2. AMBISOME [Suspect]
     Active Substance: AMPHOTERICIN B
     Indication: Bronchopulmonary aspergillosis
     Dosage: 1 DOSAGE FORM, DAILY
     Dates: start: 20250717
  3. ALBUTEROL [Suspect]
     Active Substance: ALBUTEROL
     Indication: Bronchopulmonary aspergillosis
     Dosage: 1 DOSAGE FORM, DAILY
     Dates: start: 20250725

REACTIONS (3)
  - Hypertension [Not Recovered/Not Resolved]
  - Eyelid oedema [Not Recovered/Not Resolved]
  - Headache [Not Recovered/Not Resolved]

NARRATIVE: CASE EVENT DATE: 20250813
